FAERS Safety Report 4913771-2 (Version None)
Quarter: 2006Q1

REPORT INFORMATION
  Report Type: 
  Country: None (occurrence: None)
  Receive Date: 20060216
  Receipt Date: 20041203
  Transmission Date: 20060701
  Serious: Yes (Other)
  Sender: FDA-Public Use
  Company Number: GB-GLAXOSMITHKLINE-B0360924A

PATIENT
  Sex: Female

DRUGS (6)
  1. PAROXETINE HYDROCHLORIDE [Suspect]
     Route: 065
     Dates: start: 20010208, end: 20041005
  2. HRT [Concomitant]
     Route: 065
  3. FLU VACCINE [Concomitant]
     Route: 065
     Dates: start: 20021001
  4. CO-CODAMOL [Concomitant]
     Route: 065
  5. ALCOHOL [Concomitant]
     Route: 065
  6. IMIGRAN [Concomitant]
     Route: 065

REACTIONS (6)
  - CONFUSIONAL STATE [None]
  - DEPRESSED LEVEL OF CONSCIOUSNESS [None]
  - DEPRESSED MOOD [None]
  - DRUG WITHDRAWAL SYNDROME [None]
  - MEMORY IMPAIRMENT [None]
  - NIGHTMARE [None]
